FAERS Safety Report 9429141 (Version 1)
Quarter: 2013Q3

REPORT INFORMATION
  Report Type: Spontaneous
  Country: US (occurrence: US)
  Receive Date: 20130730
  Receipt Date: 20130730
  Transmission Date: 20140515
  Serious: Yes (Hospitalization, Other)
  Sender: FDA-Public Use
  Company Number: US-SANOFI-AVENTIS-2013SA074337

PATIENT
  Sex: Female

DRUGS (18)
  1. AMBIEN [Suspect]
     Route: 065
  2. KEPPRA [Suspect]
     Indication: CONVULSION
     Route: 065
  3. KEPPRA [Suspect]
     Indication: CONVULSION
     Route: 065
  4. ACETAMINOPHEN W/HYDROCODONE BITARTRATE [Concomitant]
  5. PROMETHAZINE [Concomitant]
  6. AMIODARONE HYDROCHLORIDE [Concomitant]
  7. ACEBUTOLOL [Concomitant]
  8. KLONOPIN [Concomitant]
  9. NEURONTIN [Concomitant]
  10. ACETAMINOP. W/BUTALBITAL/CAFF./CODEINE PHOSP. [Concomitant]
  11. CYCLOBENZAPRINE [Concomitant]
  12. LOSARTAN POTASSIUM [Concomitant]
  13. CLAVULANATE POTASSIUM [Concomitant]
  14. NASONEX [Concomitant]
  15. CALCIUM CITRATE W/VITAMIN D NOS [Concomitant]
  16. VITAMIN D3 [Concomitant]
  17. ICAPS [Concomitant]
  18. GENTEAL [Concomitant]

REACTIONS (6)
  - Cerebral haemorrhage [Unknown]
  - Hypokinesia [Unknown]
  - Head injury [Unknown]
  - Fall [Recovered/Resolved]
  - Large intestine perforation [Recovered/Resolved]
  - Hallucination [Recovered/Resolved]
